FAERS Safety Report 16368402 (Version 1)
Quarter: 2019Q2

REPORT INFORMATION
  Report Type: Spontaneous
  Country: GB (occurrence: GB)
  Receive Date: 20190529
  Receipt Date: 20190529
  Transmission Date: 20190711
  Serious: Yes (Death)
  Sender: FDA-Public Use
  Company Number: GB-PFIZER INC-2019224805

PATIENT
  Age: 47 Year
  Sex: Male

DRUGS (5)
  1. CLARITHROMYCIN. [Suspect]
     Active Substance: CLARITHROMYCIN
     Dosage: UNK
     Dates: start: 20170710
  2. PIPERACILLIN/TAZOBACTAM [Suspect]
     Active Substance: PIPERACILLIN SODIUM\TAZOBACTAM SODIUM
     Dosage: UNK
     Dates: start: 20170710
  3. FOLIC ACID. [Suspect]
     Active Substance: FOLIC ACID
     Dosage: UNK
     Dates: start: 20170710
  4. CIPROFLOXACIN HCL [Suspect]
     Active Substance: CIPROFLOXACIN HYDROCHLORIDE
     Dosage: UNK
     Dates: start: 20170710
  5. MEROPENEM. [Suspect]
     Active Substance: MEROPENEM
     Dosage: 2 G, 3X/DAY
     Dates: start: 20170710

REACTIONS (4)
  - Autoimmune haemolytic anaemia [Fatal]
  - Cardiac arrest [Fatal]
  - Leukoencephalopathy [Fatal]
  - Parvovirus infection [Fatal]
